FAERS Safety Report 6379281-3 (Version None)
Quarter: 2009Q3

REPORT INFORMATION
  Report Type: 
  Country: None (occurrence: None)
  Receive Date: 20090928
  Receipt Date: 20090917
  Transmission Date: 20100115
  Serious: No
  Sender: FDA-Public Use
  Company Number: US-B.I. PHARMACEUTICALS,INC./RIDGEFIELD-2009-BP-09477BP

PATIENT
  Sex: Female

DRUGS (8)
  1. SPIRIVA [Suspect]
     Indication: ASTHMA
     Dosage: 18 MCG
     Route: 055
     Dates: start: 20080801
  2. NORVASC [Concomitant]
     Indication: HYPERTENSION
  3. SINGULAIR [Concomitant]
     Indication: ASTHMA
  4. ALBUTEROL [Concomitant]
     Indication: ASTHMA
  5. AZMACORT [Concomitant]
     Indication: ASTHMA
  6. FLONASE [Concomitant]
     Indication: ASTHMA
  7. HYZAAR [Concomitant]
     Indication: HYPERTENSION
  8. DUONEB [Concomitant]
     Indication: ASTHMA

REACTIONS (4)
  - ASTHMA [None]
  - BLOOD POTASSIUM DECREASED [None]
  - OEDEMA PERIPHERAL [None]
  - VISUAL ACUITY REDUCED [None]
